FAERS Safety Report 17798190 (Version 1)
Quarter: 2020Q2

REPORT INFORMATION
  Report Type: Spontaneous
  Country: US (occurrence: US)
  Receive Date: 20200517
  Receipt Date: 20200517
  Transmission Date: 20200714
  Serious: Yes (Life-Threatening)
  Sender: FDA-Public Use
  Company Number: None

PATIENT
  Age: 40 Year
  Sex: Male
  Weight: 135 kg

DRUGS (1)
  1. TRIAMCINOLONE ACETONIDE CREAM USP [Suspect]
     Active Substance: TRIAMCINOLONE ACETONIDE
     Indication: PSORIASIS
     Dosage: ?          QUANTITY:1 OUNCE(S);?
     Route: 061
     Dates: start: 20200509, end: 20200517

REACTIONS (7)
  - Abdominal pain upper [None]
  - Feeling abnormal [None]
  - Chromaturia [None]
  - Pain [None]
  - Skin disorder [None]
  - Respiration abnormal [None]
  - Anxiety [None]

NARRATIVE: CASE EVENT DATE: 20200512
